FAERS Safety Report 7468180-1 (Version None)
Quarter: 2011Q2

REPORT INFORMATION
  Report Type: 
  Country: None (occurrence: None)
  Receive Date: 20110509
  Receipt Date: 20110414
  Transmission Date: 20111010
  Serious: Yes (Hospitalization)
  Sender: FDA-Public Use
  Company Number: US-ALEXION-A201100347

PATIENT
  Sex: Male

DRUGS (6)
  1. SOLIRIS [Suspect]
     Indication: PAROXYSMAL NOCTURNAL HAEMOGLOBINURIA
     Dosage: 600 MG, UNK
     Route: 042
     Dates: start: 20110222, end: 20110301
  2. SOLIRIS [Suspect]
     Dosage: 900 MG, UNK
     Route: 042
  3. MULTI-VITAMIN [Concomitant]
     Dosage: UNK
  4. INSULIN [Concomitant]
     Indication: DIABETES MELLITUS
     Dosage: UNK
  5. PENICILLIN VK [Concomitant]
     Indication: PROPHYLAXIS
     Dosage: UNK
     Dates: start: 20110215
  6. IRON [Concomitant]
     Dosage: UNK

REACTIONS (7)
  - FEBRILE NEUTROPENIA [None]
  - URINE COLOUR ABNORMAL [None]
  - MUSCULOSKELETAL DISCOMFORT [None]
  - NEUTROPHIL COUNT DECREASED [None]
  - CHEST DISCOMFORT [None]
  - HAEMOGLOBIN DECREASED [None]
  - HAEMATOCRIT DECREASED [None]
